APPROVED DRUG PRODUCT: DEXASPORIN
Active Ingredient: DEXAMETHASONE; NEOMYCIN SULFATE; POLYMYXIN B SULFATE
Strength: 0.1%;EQ 3.5MG BASE/GM;10,000 UNITS/GM
Dosage Form/Route: OINTMENT;OPHTHALMIC
Application: A062411 | Product #001
Applicant: PHARMAFAIR INC
Approved: May 16, 1983 | RLD: No | RS: No | Type: DISCN